FAERS Safety Report 25716577 (Version 1)
Quarter: 2025Q3

REPORT INFORMATION
  Report Type: Spontaneous
  Country: US (occurrence: US)
  Receive Date: 20250822
  Receipt Date: 20250822
  Transmission Date: 20251021
  Serious: Yes (Hospitalization, Other)
  Sender: SANOFI AVENTIS
  Company Number: US-SANOFI-02629046

PATIENT
  Sex: Female

DRUGS (2)
  1. DUPIXENT [Suspect]
     Active Substance: DUPILUMAB
     Indication: Product used for unknown indication
     Dosage: 300 MG QOW
     Dates: start: 2024
  2. OPZELURA [Concomitant]
     Active Substance: RUXOLITINIB PHOSPHATE

REACTIONS (3)
  - Cerebral haemorrhage [Recovering/Resolving]
  - Brain injury [Recovering/Resolving]
  - Fall [Recovering/Resolving]
